FAERS Safety Report 6005407-7 (Version None)
Quarter: 2008Q4

REPORT INFORMATION
  Report Type: 
  Country: None (occurrence: None)
  Receive Date: 20081217
  Receipt Date: 20081209
  Transmission Date: 20090506
  Serious: Yes (Hospitalization, Other)
  Sender: FDA-Public Use
  Company Number: DE-RANBAXY-2008RR-19841

PATIENT
  Sex: Female
  Weight: 45 kg

DRUGS (10)
  1. IBUPROFEN [Suspect]
     Indication: PAIN
     Dosage: 400 MG, TID
     Route: 048
     Dates: start: 20080326, end: 20080413
  2. CARBOSTESIN [Suspect]
     Dosage: 1800 MG, SINGLE
     Route: 053
     Dates: start: 20080401, end: 20080409
  3. CARBOSTESIN [Suspect]
     Dosage: 50 MG, SINGLE
  4. LORMETAZEPAM [Concomitant]
     Dosage: 2 MG, QD
     Route: 048
     Dates: start: 20080326, end: 20080407
  5. LORMETAZEPAM [Concomitant]
     Dosage: UNK
  6. EMBOLEX [Concomitant]
     Indication: THROMBOSIS PROPHYLAXIS
     Dosage: 3000 IU, QD
     Route: 058
     Dates: start: 20080326, end: 20080410
  7. NOVALGIN [Concomitant]
     Dosage: 1500 MG, QD
     Route: 048
     Dates: start: 20080326, end: 20080409
  8. PANTOZOL [Concomitant]
     Dosage: 40 MG, QD
     Route: 048
     Dates: start: 20080326, end: 20080413
  9. PANTOZOL [Concomitant]
     Dosage: UNK
  10. TRAMADOL HCL [Concomitant]
     Dosage: 75 MG, QD
     Route: 048
     Dates: start: 20080409, end: 20080409

REACTIONS (1)
  - HEPATITIS ACUTE [None]
